FAERS Safety Report 6091898-2 (Version None)
Quarter: 2009Q1

REPORT INFORMATION
  Report Type: 
  Country: None (occurrence: None)
  Receive Date: 20090225
  Receipt Date: 20080918
  Transmission Date: 20090719
  Serious: No
  Sender: FDA-Public Use
  Company Number: A0748157A

PATIENT
  Age: 59 Year
  Sex: Female

DRUGS (7)
  1. VALTREX [Suspect]
     Dosage: 1G FIVE TIMES PER DAY
     Route: 048
     Dates: start: 20080101
  2. KENALOG [Concomitant]
  3. ACYCLOVIR [Concomitant]
  4. BUSPAR [Concomitant]
  5. UNKNOWN MEDICATION [Concomitant]
  6. LEVOXYL [Concomitant]
  7. XYREM [Concomitant]

REACTIONS (1)
  - DRUG INEFFECTIVE [None]
